FAERS Safety Report 5427425-X (Version None)
Quarter: 2007Q3

REPORT INFORMATION
  Report Type: 
  Country: None (occurrence: None)
  Receive Date: 20070824
  Receipt Date: 20070824
  Transmission Date: 20080115
  Serious: Yes (Hospitalization)
  Sender: FDA-Public Use
  Company Number: None

PATIENT
  Age: 73 Year
  Sex: Female

DRUGS (1)
  1. MULTIHANCE [Suspect]
     Dosage: VIAL 1 X IV DRIP
     Route: 041
     Dates: start: 20070822, end: 20070822

REACTIONS (7)
  - CHEST PAIN [None]
  - DYSPHONIA [None]
  - HYPERVENTILATION [None]
  - LIP SWELLING [None]
  - PARAESTHESIA [None]
  - PRURITUS [None]
  - SNEEZING [None]
